FAERS Safety Report 9121466 (Version 1)
Quarter: 2013Q1

REPORT INFORMATION
  Report Type: Spontaneous
  Country: US (occurrence: US)
  Receive Date: 20130225
  Receipt Date: 20130225
  Transmission Date: 20140127
  Serious: No
  Sender: FDA-Public Use
  Company Number: US-PFIZER INC-2013067276

PATIENT
  Age: 53 Year
  Sex: Female
  Weight: 58.05 kg

DRUGS (1)
  1. LYRICA [Suspect]
     Indication: NERVE COMPRESSION
     Dosage: 75 MG, 1X/DAY
     Route: 048
     Dates: start: 20130218, end: 20130218

REACTIONS (3)
  - Feeling abnormal [Unknown]
  - Thinking abnormal [Unknown]
  - Asthenia [Unknown]
